FAERS Safety Report 5130373-6 (Version None)
Quarter: 2006Q4

REPORT INFORMATION
  Report Type: 
  Country: None (occurrence: None)
  Receive Date: 20061019
  Receipt Date: 20061013
  Transmission Date: 20070319
  Serious: Yes (Death)
  Sender: FDA-Public Use
  Company Number: US-BAYER-200616054BWH

PATIENT
  Sex: Female

DRUGS (1)
  1. APROTININ [Suspect]
     Indication: DRUG USE FOR UNKNOWN INDICATION

REACTIONS (1)
  - THROMBOSIS [None]
